FAERS Safety Report 9960017 (Version 1)
Quarter: 2014Q1

REPORT INFORMATION
  Report Type: Report from Study
  Country: US (occurrence: US)
  Receive Date: 20140305
  Receipt Date: 20140305
  Transmission Date: 20141002
  Serious: Yes (Hospitalization)
  Sender: FDA-Public Use
  Company Number: US-ABBVIE-13P-163-1106571-00

PATIENT
  Age: 71 Year
  Sex: Female

DRUGS (18)
  1. HUMIRA [Suspect]
     Indication: PSORIATIC ARTHROPATHY
     Dates: start: 201210
  2. ISOSORBIDE [Concomitant]
     Indication: CARDIAC DISORDER
  3. PREDNISONE [Concomitant]
     Indication: PSORIATIC ARTHROPATHY
  4. VITAMIN D3 [Concomitant]
     Indication: ARTHRITIS
     Dosage: DAILY
  5. ALDACTONE [Concomitant]
     Indication: DIURETIC THERAPY
     Dosage: 25 MG DAILY
  6. GABAPENTIN [Concomitant]
     Indication: ARTHRITIS
  7. METOPROLOL [Concomitant]
     Indication: BLOOD PRESSURE ABNORMAL
     Dosage: 50 MG IN AM AND 25 MG IN PM
  8. FOLIC ACID [Concomitant]
     Indication: PRODUCT USED FOR UNKNOWN INDICATION
  9. LOSARTAN [Concomitant]
     Indication: CARDIAC DISORDER
     Dosage: 50 MG DAILY
  10. WARFARIN [Concomitant]
     Indication: PRODUCT USED FOR UNKNOWN INDICATION
     Dosage: 3 MG DAILY, CHANGES WEEKLY
  11. ATORVASTATIN [Concomitant]
     Indication: BLOOD CHOLESTEROL ABNORMAL
     Dosage: AT BEDTIME
  12. HYDROCODONE [Concomitant]
     Indication: PAIN
  13. VITAMIN B 12 [Concomitant]
     Indication: VITAMIN SUPPLEMENTATION
     Route: 060
  14. NITRO [Concomitant]
     Indication: PRODUCT USED FOR UNKNOWN INDICATION
  15. CARISOPRODOL [Concomitant]
     Indication: MUSCLE SPASMS
  16. CARISOPRODOL [Concomitant]
     Indication: SPINAL OSTEOARTHRITIS
  17. IPRATROPIUM [Concomitant]
     Indication: HYPERSENSITIVITY
     Dosage: EVERY 6-8 HOURS
  18. OMEPRAZOLE [Concomitant]
     Indication: GASTROOESOPHAGEAL REFLUX DISEASE

REACTIONS (4)
  - Atrial fibrillation [Not Recovered/Not Resolved]
  - Alopecia [Not Recovered/Not Resolved]
  - Incorrect dose administered [Unknown]
  - Device malfunction [Unknown]
